FAERS Safety Report 19187887 (Version 1)
Quarter: 2021Q2

REPORT INFORMATION
  Report Type: Spontaneous
  Country: PT (occurrence: PT)
  Receive Date: 20210428
  Receipt Date: 20210428
  Transmission Date: 20210717
  Serious: Yes (Hospitalization, Other)
  Sender: FDA-Public Use
  Company Number: PT-009507513-2104PRT007123

PATIENT
  Age: 61 Year
  Sex: Male

DRUGS (1)
  1. PEMBROLIZUMAB. [Suspect]
     Active Substance: PEMBROLIZUMAB
     Indication: MALIGNANT MELANOMA
     Dosage: 400 MILLIGRAM, EVERY 6 WEEKS

REACTIONS (4)
  - Respiratory arrest [Not Recovered/Not Resolved]
  - Immune-mediated myositis [Not Recovered/Not Resolved]
  - Immune-mediated lung disease [Not Recovered/Not Resolved]
  - Eye disorder [Unknown]
